FAERS Safety Report 17987607 (Version 1)
Quarter: 2020Q3

REPORT INFORMATION
  Report Type: Spontaneous
  Country: US (occurrence: US)
  Receive Date: 20200706
  Receipt Date: 20200706
  Transmission Date: 20201103
  Serious: Yes (Other)
  Sender: FDA-Public Use
  Company Number: None

PATIENT
  Age: 64 Year
  Sex: Male

DRUGS (14)
  1. METHPTREXATE [Concomitant]
  2. PANTOPRAZOLE [Concomitant]
     Active Substance: PANTOPRAZOLE
  3. CIMZIA [Suspect]
     Active Substance: CERTOLIZUMAB PEGOL
     Indication: RHEUMATOID ARTHRITIS
     Dosage: OTHER DOSE:1 SYR; Q2W SQ?
     Route: 058
     Dates: start: 20160206
  4. DICLOFENAC [Concomitant]
     Active Substance: DICLOFENAC
  5. PREDNISONE. [Concomitant]
     Active Substance: PREDNISONE
  6. VIRTUSSIN AC [Concomitant]
     Active Substance: CODEINE PHOSPHATE\GUAIFENESIN
  7. AMOX/K CLAV [Concomitant]
     Active Substance: AMOXICILLIN\CLAVULANATE POTASSIUM
  8. FOLIC ACID. [Concomitant]
     Active Substance: FOLIC ACID
  9. PHENTERMINE. [Concomitant]
     Active Substance: PHENTERMINE
  10. TRAMADOL HCL [Concomitant]
     Active Substance: TRAMADOL HYDROCHLORIDE
  11. CIPROFLOXACN [Concomitant]
     Active Substance: CIPROFLOXACIN
  12. XARELTO [Concomitant]
     Active Substance: RIVAROXABAN
  13. ATORVASTATIN [Concomitant]
     Active Substance: ATORVASTATIN
  14. AZIHROMYCIN [Concomitant]

REACTIONS (2)
  - Prostate cancer [None]
  - Therapy interrupted [None]

NARRATIVE: CASE EVENT DATE: 202004
